FAERS Safety Report 6997038-7 (Version None)
Quarter: 2010Q3

REPORT INFORMATION
  Report Type: 
  Country: None (occurrence: None)
  Receive Date: 20100918
  Receipt Date: 20090901
  Transmission Date: 20110219
  Serious: No
  Sender: FDA-Public Use
  Company Number: US-WYE-H10801509

PATIENT
  Sex: Female
  Weight: 134.38 kg

DRUGS (8)
  1. EFFEXOR XR [Suspect]
     Indication: DEPRESSION
     Route: 048
     Dates: start: 20080401, end: 20090101
  2. CRESTOR [Concomitant]
  3. MULTI-VITAMINS [Concomitant]
  4. ALENDRONATE SODIUM [Concomitant]
  5. CALCIUM [Concomitant]
  6. FISH OIL, HYDROGENATED [Concomitant]
  7. LEVOTHYROXINE [Concomitant]
  8. EXFORGE [Concomitant]

REACTIONS (4)
  - DEPRESSION [None]
  - DRUG WITHDRAWAL SYNDROME [None]
  - MYALGIA [None]
  - NIGHTMARE [None]
